FAERS Safety Report 9114530 (Version 3)
Quarter: 2013Q2

REPORT INFORMATION
  Report Type: Spontaneous
  Country: US (occurrence: US)
  Receive Date: 20130128
  Receipt Date: 20130531
  Transmission Date: 20140414
  Serious: Yes (Death)
  Sender: FDA-Public Use
  Company Number: US-AMGEN-USASP2013005025

PATIENT
  Age: 90 Year
  Sex: Female
  Weight: 54.42 kg

DRUGS (5)
  1. PROLIA [Suspect]
     Indication: OSTEOPOROSIS
     Dosage: 60 MG, Q6MO
     Route: 058
     Dates: start: 20101006, end: 20121002
  2. PROLIA [Suspect]
  3. ATIVAN [Concomitant]
     Indication: ANXIETY
     Dosage: 0.25 MG, QWK
     Route: 048
     Dates: start: 20120409, end: 20121110
  4. INDERAL [Concomitant]
     Indication: TREMOR
     Dosage: 10 MG, QD
     Route: 048
     Dates: start: 20100226, end: 20121110
  5. VASOTEC                            /00574902/ [Concomitant]
     Indication: HYPERTENSION
     Dosage: 5 MG, QD
     Route: 048
     Dates: start: 20030502, end: 20121110

REACTIONS (2)
  - Cerebrovascular accident [Fatal]
  - General physical health deterioration [Fatal]
